FAERS Safety Report 14185765 (Version 5)
Quarter: 2018Q1

REPORT INFORMATION
  Report Type: Spontaneous
  Country: IT (occurrence: IT)
  Receive Date: 20171114
  Receipt Date: 20180322
  Transmission Date: 20180508
  Serious: Yes (Other)
  Sender: FDA-Public Use
  Company Number: IT-AUROBINDO-AUR-APL-2017-43469

PATIENT
  Age: 47 Year
  Sex: Male

DRUGS (1)
  1. QUETIAPINE PROLONGED-RELEASE TABLET [Suspect]
     Active Substance: QUETIAPINE
     Indication: ADJUSTMENT DISORDER WITH DEPRESSED MOOD
     Dosage: 800 MG, TOTAL
     Route: 048
     Dates: start: 20170610, end: 20170610

REACTIONS (1)
  - Drug abuse [Recovering/Resolving]

NARRATIVE: CASE EVENT DATE: 20170610
